FAERS Safety Report 7532810-6 (Version None)
Quarter: 2011Q2

REPORT INFORMATION
  Report Type: 
  Country: None (occurrence: None)
  Receive Date: 20110608
  Receipt Date: 20110527
  Transmission Date: 20111010
  Serious: Yes (Other)
  Sender: FDA-Public Use
  Company Number: B0724869A

PATIENT
  Sex: Male

DRUGS (1)
  1. ZOVIRAX [Suspect]
     Route: 065

REACTIONS (2)
  - PRODUCT QUALITY ISSUE [None]
  - VISUAL IMPAIRMENT [None]
